FAERS Safety Report 23940129 (Version 1)
Quarter: 2024Q2

REPORT INFORMATION
  Report Type: Spontaneous
  Country: US (occurrence: US)
  Receive Date: 20240605
  Receipt Date: 20240605
  Transmission Date: 20240716
  Serious: No
  Sender: FDA-Public Use
  Company Number: US-JNJFOC-20240549211

PATIENT

DRUGS (1)
  1. TYLENOL [Suspect]
     Active Substance: ACETAMINOPHEN
     Indication: Product used for unknown indication
     Dosage: HAD ABOUT 15 OF THEM (NOT RECOMMENDED) AND A COURSE OF 24 HOURS
     Route: 065

REACTIONS (2)
  - Gastrointestinal disorder [Unknown]
  - Intentional overdose [Unknown]
